FAERS Safety Report 4549115-8 (Version None)
Quarter: 2004Q4

REPORT INFORMATION
  Report Type: 
  Country: None (occurrence: None)
  Receive Date: 20041227
  Receipt Date: 20040916
  Transmission Date: 20050328
  Serious: No
  Sender: FDA-Public Use
  Company Number: 04P-163-0273470-00

PATIENT
  Age: 59 Year
  Sex: Male
  Weight: 68.4932 kg

DRUGS (15)
  1. HUMIRA [Suspect]
     Indication: RHEUMATOID ARTHRITIS
     Dosage: 40 MG, 1 IN 2 WK, SUBCUTANEOUS
     Route: 058
     Dates: start: 20040601
  2. DIGOXIN [Concomitant]
  3. FUROSEMIDE [Concomitant]
  4. PREDNISONE [Concomitant]
  5. ACETYLSALICYLIC ACID SRT [Concomitant]
  6. FOLIC ACID [Concomitant]
  7. GLIBENCLAMIDE [Concomitant]
  8. ENALAPRIL MALEATE [Concomitant]
  9. RANITIDINE HYDROCHLORIDE [Concomitant]
  10. INSULIN GLARGINE [Concomitant]
  11. METHOTREXATE SODIUM [Concomitant]
  12. MORPHINE [Concomitant]
  13. NITRO SLOCAP [Concomitant]
  14. ATENOLOL [Concomitant]
  15. INSULIN [Concomitant]

REACTIONS (1)
  - INJECTION SITE BURNING [None]
